FAERS Safety Report 13838239 (Version 1)
Quarter: 2017Q3

REPORT INFORMATION
  Report Type: Report from Study
  Country: None (occurrence: BR)
  Receive Date: 20170807
  Receipt Date: 20170807
  Transmission Date: 20171127
  Serious: Yes (Other)
  Sender: FDA-Public Use
  Company Number: BR-ABBVIE-17K-020-2058112-00

PATIENT
  Age: 50 Year
  Sex: Female

DRUGS (1)
  1. HUMIRA [Suspect]
     Active Substance: ADALIMUMAB
     Indication: RHEUMATOID ARTHRITIS
     Route: 058
     Dates: start: 20170710

REACTIONS (6)
  - Immunodeficiency [Unknown]
  - Blood pressure fluctuation [Unknown]
  - Subglottic laryngitis [Unknown]
  - Hypophagia [Unknown]
  - Condition aggravated [Unknown]
  - Dysphagia [Unknown]

NARRATIVE: CASE EVENT DATE: 201707
